FAERS Safety Report 4357559-2 (Version None)
Quarter: 2004Q2

REPORT INFORMATION
  Report Type: 
  Country: None (occurrence: None)
  Receive Date: 20040510
  Receipt Date: 20040429
  Transmission Date: 20050107
  Serious: Yes (Hospitalization)
  Sender: FDA-Public Use
  Company Number: GB-JNJFOC-20040401151

PATIENT
  Age: 44 Year
  Sex: Female
  Weight: 50 kg

DRUGS (7)
  1. REMICADE [Suspect]
     Indication: RHEUMATOID ARTHRITIS
     Dosage: 150 MG, INTRAVENOUS
     Route: 042
     Dates: start: 20030106
  2. METHOTREXATE [Concomitant]
  3. FOLIC ACID [Concomitant]
  4. DICLOFENAC (DICLOFENAC) [Concomitant]
  5. DIHYDROCODEINE (DIHYDROCODEINE) [Concomitant]
  6. SENNA (SENNA) [Concomitant]
  7. CALCICHEW VIT D FORTE (LEKOVIT CA) [Concomitant]

REACTIONS (4)
  - ALANINE AMINOTRANSFERASE INCREASED [None]
  - NEUTROPHIL COUNT DECREASED [None]
  - PULMONARY CALCIFICATION [None]
  - PULMONARY TUBERCULOSIS [None]
